FAERS Safety Report 8809118 (Version 1)
Quarter: 2012Q4

REPORT INFORMATION
  Report Type: Spontaneous
  Country: US (occurrence: None)
  Receive Date: 20120921
  Receipt Date: 20120921
  Transmission Date: 20130627
  Serious: Yes (Hospitalization, Disabling, Other)
  Sender: FDA-Public Use
  Company Number: None

PATIENT
  Age: 69 Year
  Sex: Male
  Weight: 82.56 kg

DRUGS (1)
  1. MIRAPEX [Suspect]

REACTIONS (2)
  - Cardiac failure [None]
  - Myocardial infarction [None]
